FAERS Safety Report 10230632 (Version 1)
Quarter: 2014Q2

REPORT INFORMATION
  Report Type: Spontaneous
  Country: US (occurrence: None)
  Receive Date: 20140610
  Receipt Date: 20140610
  Transmission Date: 20141212
  Serious: No
  Sender: FDA-Public Use
  Company Number: None

PATIENT
  Age: 55 Year
  Sex: Male
  Weight: 65.77 kg

DRUGS (1)
  1. VIMPAT [Suspect]
     Indication: EPILEPSY
     Dosage: 1 PILL 2X DAILY, TWICE DAILY, TAKEN BY MOUTH
     Route: 048
     Dates: start: 20130715, end: 20140609

REACTIONS (5)
  - Hypoaesthesia oral [None]
  - Lip swelling [None]
  - Memory impairment [None]
  - Tinnitus [None]
  - Condition aggravated [None]
